FAERS Safety Report 16274831 (Version 1)
Quarter: 2019Q2

REPORT INFORMATION
  Report Type: Spontaneous
  Country: US (occurrence: US)
  Receive Date: 20190506
  Receipt Date: 20190506
  Transmission Date: 20190711
  Serious: Yes (Other)
  Sender: FDA-Public Use
  Company Number: US-AKORN PHARMACEUTICALS-2019AKN00659

PATIENT
  Sex: Female
  Weight: 53.52 kg

DRUGS (6)
  1. CLOBETASOL SCALP SOLUTION [Concomitant]
  2. MYORISAN [Suspect]
     Active Substance: ISOTRETINOIN
     Indication: ACNE
     Dosage: 30 MG, 2X/DAY
     Route: 048
     Dates: start: 20181212, end: 20190225
  3. DAILY MULTIVITAMIN [Concomitant]
     Active Substance: VITAMINS
  4. KETOCONAZOLE. [Concomitant]
     Active Substance: KETOCONAZOLE
  5. MOMETASONE [Concomitant]
     Active Substance: MOMETASONE
  6. UNSPECIFIED BIRTH CONTROL PILLS [Concomitant]
     Active Substance: UNSPECIFIED INGREDIENT

REACTIONS (3)
  - Xerosis [Recovered/Resolved]
  - Cheilitis [Recovered/Resolved]
  - Depression [Recovered/Resolved]
